FAERS Safety Report 18783414 (Version 2)
Quarter: 2021Q1

REPORT INFORMATION
  Report Type: Spontaneous
  Country: CA (occurrence: CA)
  Receive Date: 20210125
  Receipt Date: 20210217
  Transmission Date: 20210419
  Serious: Yes (Death)
  Sender: FDA-Public Use
  Company Number: CA-PFIZER INC-2021056521

PATIENT
  Age: 78 Year
  Sex: Male

DRUGS (19)
  1. ATROVENT [Concomitant]
     Active Substance: IPRATROPIUM BROMIDE
  2. SALBUTAMOL [Concomitant]
     Active Substance: ALBUTEROL
  3. MYRBETRIQ [Concomitant]
     Active Substance: MIRABEGRON
  4. TRANEXAMIC [Concomitant]
     Active Substance: TRANEXAMIC ACID
  5. RAMIPRIL. [Concomitant]
     Active Substance: RAMIPRIL
  6. ATENOLOL. [Concomitant]
     Active Substance: ATENOLOL
  7. JUBLIA [Concomitant]
     Active Substance: EFINACONAZOLE
  8. STATEX [MORPHINE SULFATE] [Concomitant]
     Active Substance: MORPHINE SULFATE
  9. VITAMIN D [VITAMIN D NOS] [Concomitant]
     Active Substance: VITAMIN D NOS
  10. DAURISMO [Suspect]
     Active Substance: GLASDEGIB
     Dosage: 100 MG, 1X/DAY
     Route: 048
     Dates: start: 20201123, end: 20210116
  11. NABILONE [Concomitant]
     Active Substance: NABILONE
  12. PANTOPRAZOLE [Concomitant]
     Active Substance: PANTOPRAZOLE
  13. ANUGESIC [Concomitant]
  14. SENNOKOTT [Concomitant]
     Active Substance: SENNOSIDES A AND B
  15. TAMSULOSIN [Concomitant]
     Active Substance: TAMSULOSIN
  16. ONDANSETRON [Concomitant]
     Active Substance: ONDANSETRON
  17. ROSUVASTATIN. [Concomitant]
     Active Substance: ROSUVASTATIN
  18. FLUTICASONE. [Concomitant]
     Active Substance: FLUTICASONE
  19. HYDROXYUREA. [Concomitant]
     Active Substance: HYDROXYUREA

REACTIONS (1)
  - Neoplasm progression [Fatal]

NARRATIVE: CASE EVENT DATE: 20210117
